FAERS Safety Report 8322906-3 (Version None)
Quarter: 2012Q2

REPORT INFORMATION
  Report Type: 
  Country: None (occurrence: None)
  Receive Date: 20120430
  Receipt Date: 20120424
  Transmission Date: 20120825
  Serious: No
  Sender: FDA-Public Use
  Company Number: US-PFIZER INC-2012089149

PATIENT
  Sex: Female

DRUGS (1)
  1. SOLU-MEDROL [Suspect]
     Indication: OPTIC NEURITIS
     Dosage: 1000 G, UNK
     Route: 042
     Dates: start: 20120401

REACTIONS (3)
  - DRUG INEFFECTIVE [None]
  - VISUAL ACUITY REDUCED [None]
  - VISUAL IMPAIRMENT [None]
